FAERS Safety Report 25175223 (Version 2)
Quarter: 2025Q2

REPORT INFORMATION
  Report Type: Report from Study
  Country: US (occurrence: US)
  Receive Date: 20250408
  Receipt Date: 20250415
  Transmission Date: 20250717
  Serious: No
  Sender: TG THERAPEUTICS
  Company Number: US-TG THERAPEUTICS INC.-TGT004759

PATIENT

DRUGS (1)
  1. UBLITUXIMAB [Suspect]
     Active Substance: UBLITUXIMAB
     Indication: Multiple sclerosis
     Route: 042
     Dates: start: 20250226, end: 20250226

REACTIONS (2)
  - Herpes virus infection [Not Recovered/Not Resolved]
  - Rhinitis [Unknown]

NARRATIVE: CASE EVENT DATE: 20250101
